FAERS Safety Report 9363867 (Version 3)
Quarter: 2013Q3

REPORT INFORMATION
  Report Type: Spontaneous
  Country: US (occurrence: US)
  Receive Date: 20130624
  Receipt Date: 20130918
  Transmission Date: 20140515
  Serious: Yes (Hospitalization, Other)
  Sender: FDA-Public Use
  Company Number: US-PFIZER INC-2013186093

PATIENT
  Age: 75 Year
  Sex: Female
  Weight: 53.52 kg

DRUGS (5)
  1. DETROL LA [Suspect]
     Indication: BLADDER DISORDER
     Dosage: 4 MG, 1X/DAY
     Route: 048
     Dates: start: 20070711, end: 2013
  2. DETROL LA [Suspect]
     Indication: URINARY INCONTINENCE
  3. DETROL LA [Suspect]
     Indication: URINARY RETENTION
  4. TAMSULOSIN HYDROCHLORIDE [Suspect]
     Indication: URINARY RETENTION
     Dosage: 4MG DAILY AT BED TIME
  5. FLOMAX [Concomitant]
     Indication: URINARY RETENTION
     Dosage: 0.8 MG, 1X/DAY
     Dates: start: 2010

REACTIONS (2)
  - Myocardial infarction [Unknown]
  - Off label use [Unknown]
